FAERS Safety Report 12232315 (Version 1)
Quarter: 2016Q2

REPORT INFORMATION
  Report Type: Spontaneous
  Country: US (occurrence: US)
  Receive Date: 20160401
  Receipt Date: 20160401
  Transmission Date: 20160815
  Serious: Yes (Other)
  Sender: FDA-Public Use
  Company Number: US-SA-2016SA061995

PATIENT
  Age: 93 Year
  Sex: Female

DRUGS (17)
  1. LOVENOX [Suspect]
     Active Substance: ENOXAPARIN SODIUM
     Indication: ANTICOAGULANT THERAPY
     Dosage: EVERYTIME DURING THORACENTESIS WHILE SHE IS OFF THE RIVAROXABAN (XARELTO)
     Route: 051
  2. DIGOXIN. [Concomitant]
     Active Substance: DIGOXIN
     Route: 065
  3. XARELTO [Concomitant]
     Active Substance: RIVAROXABAN
     Route: 065
  4. XARELTO [Concomitant]
     Active Substance: RIVAROXABAN
     Route: 065
  5. XARELTO [Concomitant]
     Active Substance: RIVAROXABAN
     Route: 065
  6. XARELTO [Concomitant]
     Active Substance: RIVAROXABAN
     Route: 065
  7. LOVENOX [Suspect]
     Active Substance: ENOXAPARIN SODIUM
     Indication: ANTICOAGULANT THERAPY
     Dosage: EVERYTIME DURING THORACENTESIS WHILE SHE IS OFF THE RIVAROXABAN (XARELTO)
     Route: 051
  8. LOVENOX [Suspect]
     Active Substance: ENOXAPARIN SODIUM
     Indication: ANTICOAGULANT THERAPY
     Dosage: EVERYTIME DURING THORACENTESIS WHILE SHE IS OFF THE RIVAROXABAN (XARELTO)
     Route: 051
  9. XARELTO [Concomitant]
     Active Substance: RIVAROXABAN
     Route: 065
  10. XARELTO [Concomitant]
     Active Substance: RIVAROXABAN
     Route: 065
  11. XARELTO [Concomitant]
     Active Substance: RIVAROXABAN
     Route: 065
  12. LOVENOX [Suspect]
     Active Substance: ENOXAPARIN SODIUM
     Indication: ANTICOAGULANT THERAPY
     Dosage: EVERYTIME DURING THORACENTESIS WHILE SHE IS OFF THE RIVAROXABAN (XARELTO)
     Route: 051
  13. LOVENOX [Suspect]
     Active Substance: ENOXAPARIN SODIUM
     Indication: ANTICOAGULANT THERAPY
     Dosage: EVERYTIME DURING THORACENTESIS WHILE SHE IS OFF THE RIVAROXABAN (XARELTO)
     Route: 051
  14. LOVENOX [Suspect]
     Active Substance: ENOXAPARIN SODIUM
     Indication: ANTICOAGULANT THERAPY
     Dosage: EVERYTIME DURING THORACENTESIS WHILE SHE IS OFF THE RIVAROXABAN (XARELTO)
     Route: 051
  15. LOVENOX [Suspect]
     Active Substance: ENOXAPARIN SODIUM
     Indication: ANTICOAGULANT THERAPY
     Dosage: EVERYTIME DURING THORACENTESIS WHILE SHE IS OFF THE RIVAROXABAN (XARELTO)
     Route: 051
  16. LOVENOX [Suspect]
     Active Substance: ENOXAPARIN SODIUM
     Indication: ANTICOAGULANT THERAPY
     Dosage: EVERYTIME DURING THORACENTESIS WHILE SHE IS OFF THE RIVAROXABAN (XARELTO)
     Route: 051
  17. XARELTO [Concomitant]
     Active Substance: RIVAROXABAN
     Route: 065

REACTIONS (2)
  - Pulmonary thrombosis [Not Recovered/Not Resolved]
  - Pleural effusion [Not Recovered/Not Resolved]
